FAERS Safety Report 7216893-9 (Version None)
Quarter: 2010Q4

REPORT INFORMATION
  Report Type: 
  Country: None (occurrence: None)
  Receive Date: 20101230
  Receipt Date: 20101215
  Transmission Date: 20110411
  Serious: Yes (Hospitalization, Other)
  Sender: FDA-Public Use
  Company Number: 024311

PATIENT
  Sex: Female

DRUGS (4)
  1. XYZALL /01530201/ (XYZALL) [Suspect]
     Dosage: (ORAL)
     Route: 048
  2. CELESTAMINE /01758601/ (CELESTAMINE) [Suspect]
     Dosage: (ORAL)
     Route: 048
  3. SPASFON /00765801/ (SPASFON) [Suspect]
     Dosage: (ORAL)
     Route: 048
  4. DOLIPRANE (DOLIPRANE) [Suspect]
     Dosage: (ORAL)
     Route: 048

REACTIONS (3)
  - ABORTION INDUCED [None]
  - DRUG EXPOSURE DURING PREGNANCY [None]
  - PREGNANCY [None]
